FAERS Safety Report 15620407 (Version 4)
Quarter: 2019Q1

REPORT INFORMATION
  Report Type: Spontaneous
  Country: US (occurrence: US)
  Receive Date: 20181115
  Receipt Date: 20190315
  Transmission Date: 20190417
  Serious: No
  Sender: FDA-Public Use
  Company Number: US-AMGEN-USASP2018158681

PATIENT
  Age: 74 Year
  Sex: Female
  Weight: 33.65 kg

DRUGS (2)
  1. REPATHA [Suspect]
     Active Substance: EVOLOCUMAB
     Indication: PRODUCT USED FOR UNKNOWN INDICATION
     Dosage: UNK
     Route: 065
  2. INSULIN [Concomitant]
     Active Substance: INSULIN NOS

REACTIONS (6)
  - Drug dose omission by device [Unknown]
  - Accidental exposure to product [Unknown]
  - Irritable bowel syndrome [Unknown]
  - Asthma [Unknown]
  - Depression [Unknown]
  - Wrong technique in product usage process [Unknown]

NARRATIVE: CASE EVENT DATE: 201811
